FAERS Safety Report 13127104 (Version 1)
Quarter: 2017Q1

REPORT INFORMATION
  Report Type: Spontaneous
  Country: US (occurrence: US)
  Receive Date: 20170118
  Receipt Date: 20170118
  Transmission Date: 20170428
  Serious: No
  Sender: FDA-Public Use
  Company Number: US-ROCHE-1840610

PATIENT
  Sex: Female

DRUGS (7)
  1. XELJANZ [Concomitant]
     Active Substance: TOFACITINIB CITRATE
     Route: 065
     Dates: start: 20160727
  2. ACTEMRA [Suspect]
     Active Substance: TOCILIZUMAB
     Indication: RHEUMATOID ARTHRITIS
     Dosage: FOR 2 HOURS
     Route: 042
     Dates: start: 201106, end: 201505
  3. ENBREL [Suspect]
     Active Substance: ETANERCEPT
     Indication: RHEUMATOID ARTHRITIS
     Dosage: 1 SHOT ONCE A WEEK
     Route: 065
     Dates: start: 1998, end: 200806
  4. METHOTREXATE. [Concomitant]
     Active Substance: METHOTREXATE
  5. ORENCIA [Suspect]
     Active Substance: ABATACEPT
     Indication: RHEUMATOID ARTHRITIS
     Dosage: FOR 1 HOUR
     Route: 065
     Dates: start: 200904, end: 201105
  6. HUMIRA [Suspect]
     Active Substance: ADALIMUMAB
     Indication: RHEUMATOID ARTHRITIS
     Dosage: SHORT LIVED
     Route: 065
     Dates: start: 200807, end: 200903
  7. RITUXAN [Suspect]
     Active Substance: RITUXIMAB
     Indication: RHEUMATOID ARTHRITIS
     Dosage: 2 LONG INFUSIONS 2 WEEKS APART EVERY 6 MONTHS
     Route: 042
     Dates: start: 20150707, end: 20160122

REACTIONS (2)
  - Dyspnoea [Unknown]
  - Drug effect decreased [Unknown]
